FAERS Safety Report 14928493 (Version 12)
Quarter: 2020Q2

REPORT INFORMATION
  Report Type: Spontaneous
  Country: FR (occurrence: FR)
  Receive Date: 20180523
  Receipt Date: 20200514
  Transmission Date: 20200713
  Serious: Yes (Other)
  Sender: FDA-Public Use
  Company Number: FR-JNJFOC-20180528819

PATIENT
  Age: 0 Day
  Sex: Male
  Weight: 1.89 kg

DRUGS (52)
  1. RAMIPRIL. [Suspect]
     Active Substance: RAMIPRIL
     Route: 064
     Dates: start: 20170224
  2. LEVEMIR [Suspect]
     Active Substance: INSULIN DETEMIR
     Indication: PRODUCT USED FOR UNKNOWN INDICATION
     Route: 064
     Dates: start: 20160930, end: 20170224
  3. LANTUS [Suspect]
     Active Substance: INSULIN GLARGINE
     Indication: TYPE 2 DIABETES MELLITUS
     Route: 064
     Dates: start: 20170224, end: 20170914
  4. TARDYFERON [Suspect]
     Active Substance: FERROUS SULFATE
     Route: 064
  5. LABETALOL HCL [Suspect]
     Active Substance: LABETALOL HYDROCHLORIDE
     Route: 064
  6. FORLAX [Suspect]
     Active Substance: POLYETHYLENE GLYCOL 4000
     Route: 064
     Dates: start: 20170405
  7. ACIDE FOLIQUE [Suspect]
     Active Substance: FOLIC ACID
     Indication: NORMOCHROMIC NORMOCYTIC ANAEMIA
     Route: 064
     Dates: start: 20170224, end: 20170313
  8. ACIDE FOLIQUE [Suspect]
     Active Substance: FOLIC ACID
     Route: 064
     Dates: start: 20170313, end: 20170914
  9. NICARDIPINE HYDROCHLORIDE. [Suspect]
     Active Substance: NICARDIPINE HYDROCHLORIDE
     Route: 064
     Dates: start: 20170914
  10. INSULINE                           /01223401/ [Suspect]
     Active Substance: INSULIN NOS
     Indication: TYPE 2 DIABETES MELLITUS
     Route: 064
     Dates: start: 20160930, end: 20170224
  11. GABAPENTIN. [Suspect]
     Active Substance: GABAPENTIN
     Indication: DIABETIC NEUROPATHY
     Route: 064
     Dates: start: 20160930
  12. LAROXYL [Suspect]
     Active Substance: AMITRIPTYLINE HYDROCHLORIDE
     Indication: DIABETIC NEUROPATHY
     Route: 064
     Dates: start: 20160930, end: 20170914
  13. METFORMINE [Suspect]
     Active Substance: METFORMIN HYDROCHLORIDE
     Route: 064
     Dates: start: 20170224
  14. AMOXICILLIN. [Suspect]
     Active Substance: AMOXICILLIN
     Route: 064
     Dates: start: 201708
  15. NICOPATCH [Suspect]
     Active Substance: NICOTINE
     Route: 064
     Dates: start: 20170516
  16. INSULIN [Suspect]
     Active Substance: INSULIN NOS
     Indication: TYPE 2 DIABETES MELLITUS
     Route: 064
     Dates: start: 20161230, end: 20170224
  17. CALCIUM FOLINATE [Suspect]
     Active Substance: LEUCOVORIN CALCIUM
     Indication: NORMOCHROMIC NORMOCYTIC ANAEMIA
     Route: 064
     Dates: start: 20170224, end: 20170313
  18. HUMALOG [Suspect]
     Active Substance: INSULIN LISPRO
     Route: 064
     Dates: start: 20170914
  19. ARIPIPRAZOLE. [Suspect]
     Active Substance: ARIPIPRAZOLE
     Route: 064
     Dates: start: 20170224
  20. LAROXYL [Suspect]
     Active Substance: AMITRIPTYLINE HYDROCHLORIDE
     Route: 064
     Dates: start: 20170914
  21. METFORMINE [Suspect]
     Active Substance: METFORMIN HYDROCHLORIDE
     Indication: TYPE 2 DIABETES MELLITUS
     Route: 064
     Dates: start: 20160930, end: 20170224
  22. FOLIC ACID. [Suspect]
     Active Substance: FOLIC ACID
     Route: 064
     Dates: start: 20170224, end: 20170313
  23. PROPRANOLOL HYDROCHLORIDE. [Suspect]
     Active Substance: PROPRANOLOL HYDROCHLORIDE
     Indication: HYPERTENSION
     Route: 064
     Dates: start: 20170720
  24. TRAMADOL HYDROCHLORIDE. [Suspect]
     Active Substance: TRAMADOL HYDROCHLORIDE
     Route: 064
  25. FUROSEMIDE. [Suspect]
     Active Substance: FUROSEMIDE
     Route: 064
  26. METFORMINE [Suspect]
     Active Substance: METFORMIN HYDROCHLORIDE
     Route: 064
     Dates: start: 20170224
  27. GLICLAZIDE [Suspect]
     Active Substance: GLICLAZIDE
     Route: 064
     Dates: start: 20170224
  28. FORLAX [Suspect]
     Active Substance: POLYETHYLENE GLYCOL 4000
     Indication: CONSTIPATION
     Route: 064
     Dates: start: 20160930, end: 20170405
  29. CHLORPROMAZINE HYDROCHLORIDE. [Suspect]
     Active Substance: CHLORPROMAZINE HYDROCHLORIDE
     Indication: BIPOLAR I DISORDER
     Route: 064
     Dates: start: 20170720
  30. RAMIPRIL. [Suspect]
     Active Substance: RAMIPRIL
     Indication: HYPERTENSION
     Route: 064
     Dates: start: 20160930, end: 20170224
  31. HUMALOG [Suspect]
     Active Substance: INSULIN LISPRO
     Indication: TYPE 2 DIABETES MELLITUS
     Route: 064
     Dates: start: 20170224, end: 20170224
  32. FUROSEMIDE. [Suspect]
     Active Substance: FUROSEMIDE
     Indication: HYPERTENSION
     Route: 064
     Dates: start: 20170516
  33. GLICLAZIDE [Suspect]
     Active Substance: GLICLAZIDE
     Indication: TYPE 2 DIABETES MELLITUS
     Route: 064
     Dates: start: 20160930, end: 20170224
  34. DIFFU K [Suspect]
     Active Substance: POTASSIUM CHLORIDE
     Route: 064
     Dates: start: 20180804
  35. NICOPATCH [Suspect]
     Active Substance: NICOTINE
     Indication: EX-TOBACCO USER
     Route: 064
     Dates: start: 20170224, end: 20170516
  36. FOLIC ACID. [Suspect]
     Active Substance: FOLIC ACID
     Indication: NORMOCHROMIC NORMOCYTIC ANAEMIA
     Route: 064
     Dates: start: 20170224, end: 20170914
  37. GABAPENTIN. [Suspect]
     Active Substance: GABAPENTIN
     Route: 064
     Dates: start: 20160930
  38. LANTUS [Suspect]
     Active Substance: INSULIN GLARGINE
     Route: 064
  39. LABETALOL HCL [Suspect]
     Active Substance: LABETALOL HYDROCHLORIDE
     Indication: HYPERTENSION
     Route: 064
     Dates: start: 20170516, end: 20170914
  40. FOLINIC ACID [Suspect]
     Active Substance: LEUCOVORIN
     Route: 064
     Dates: start: 20170224, end: 20170914
  41. NICARDIPINE HYDROCHLORIDE. [Suspect]
     Active Substance: NICARDIPINE HYDROCHLORIDE
     Indication: HYPERTENSION
     Route: 064
     Dates: start: 20170313, end: 20170405
  42. NICARDIPINE HYDROCHLORIDE. [Suspect]
     Active Substance: NICARDIPINE HYDROCHLORIDE
     Route: 064
     Dates: start: 20170405, end: 20170914
  43. TRAMADOL HYDROCHLORIDE. [Suspect]
     Active Substance: TRAMADOL HYDROCHLORIDE
     Indication: DIABETIC NEUROPATHY
     Route: 064
     Dates: start: 20160930, end: 20170306
  44. GABAPENTIN. [Suspect]
     Active Substance: GABAPENTIN
     Route: 064
     Dates: start: 20160930
  45. ARIPIPRAZOLE. [Suspect]
     Active Substance: ARIPIPRAZOLE
     Indication: BIPOLAR I DISORDER
     Route: 064
     Dates: start: 20160930, end: 20170224
  46. TARDYFERON [Suspect]
     Active Substance: FERROUS SULFATE
     Indication: NORMOCHROMIC NORMOCYTIC ANAEMIA
     Route: 064
     Dates: start: 20170313, end: 20170914
  47. AMOXICILLIN. [Suspect]
     Active Substance: AMOXICILLIN
     Indication: PRODUCT USED FOR UNKNOWN INDICATION
     Route: 064
     Dates: start: 20170808, end: 20170811
  48. FOLINIC ACID [Suspect]
     Active Substance: LEUCOVORIN
     Indication: NORMOCHROMIC NORMOCYTIC ANAEMIA
     Route: 064
     Dates: start: 20170224, end: 20170313
  49. METHYLDOPA MSD [Suspect]
     Active Substance: METHYLDOPA
     Indication: HYPERTENSION
     Route: 064
     Dates: start: 20170720
  50. DIFFU K [Suspect]
     Active Substance: POTASSIUM CHLORIDE
     Indication: HYPOKALAEMIA
     Route: 064
  51. LOXEN (NICARDIPINE HYDROCHLORIDE) [Suspect]
     Active Substance: NICARDIPINE HYDROCHLORIDE
     Indication: HYPERTENSION
     Route: 064
     Dates: start: 20170313, end: 20170405
  52. LOXEN (NICARDIPINE HYDROCHLORIDE) [Suspect]
     Active Substance: NICARDIPINE HYDROCHLORIDE
     Route: 064
     Dates: start: 20170313, end: 20180405

REACTIONS (5)
  - Low birth weight baby [Unknown]
  - Neutropenia [Not Recovered/Not Resolved]
  - Foetal exposure during pregnancy [Recovered/Resolved]
  - Foetal disorder [Unknown]
  - Premature baby [Recovered/Resolved]

NARRATIVE: CASE EVENT DATE: 20170914
